FAERS Safety Report 4286416-5 (Version None)
Quarter: 2004Q1

REPORT INFORMATION
  Report Type: 
  Country: None (occurrence: None)
  Receive Date: 20040206
  Receipt Date: 20040116
  Transmission Date: 20041129
  Serious: Yes (Other)
  Sender: FDA-Public Use
  Company Number: FR-BRISTOL-MYERS SQUIBB COMPANY-12481669

PATIENT
  Age: 72 Year
  Sex: Male

DRUGS (3)
  1. COAPROVEL TABS [Suspect]
     Indication: HYPERTENSION
     Dosage: DURATION: 43 WEEKS, 4 DAYS  TIME TO ONSET: 41 WEEKS, 4 DAYS
     Route: 048
     Dates: start: 20030129, end: 20031129
  2. PARACETAMOL BIOGARAN [Concomitant]
     Indication: LOCALISED OSTEOARTHRITIS
     Route: 048
  3. CERVOXAN [Concomitant]
     Indication: TINNITUS
     Route: 048
     Dates: start: 20000101

REACTIONS (1)
  - HEPATITIS [None]
